FAERS Safety Report 14289263 (Version 2)
Quarter: 2018Q2

REPORT INFORMATION
  Report Type: Spontaneous
  Country: US (occurrence: US)
  Receive Date: 20171215
  Receipt Date: 20180411
  Transmission Date: 20180711
  Serious: Yes (Hospitalization)
  Sender: FDA-Public Use
  Company Number: US-PFIZER INC-2017532841

PATIENT
  Age: 80 Year
  Sex: Female
  Weight: 81.63 kg

DRUGS (1)
  1. IBRANCE [Suspect]
     Active Substance: PALBOCICLIB
     Indication: BREAST CANCER METASTATIC
     Dosage: 100 MG, CYCLIC (D1-21 Q28 DAYS)
     Route: 048
     Dates: start: 20171107

REACTIONS (4)
  - Blood test abnormal [Unknown]
  - Asthenia [Unknown]
  - Weight decreased [Unknown]
  - Influenza [Unknown]

NARRATIVE: CASE EVENT DATE: 2017
